FAERS Safety Report 6282480-2 (Version None)
Quarter: 2009Q3

REPORT INFORMATION
  Report Type: 
  Country: None (occurrence: None)
  Receive Date: 20090721
  Receipt Date: 20090721
  Transmission Date: 20100115
  Serious: Yes (Other)
  Sender: FDA-Public Use
  Company Number: None

PATIENT
  Age: 38 Year
  Sex: Female
  Weight: 135.1719 kg

DRUGS (2)
  1. MALARONE [Suspect]
     Dosage: 1 TABLET DAILY
     Dates: start: 20090531, end: 20090629
  2. MALARONE [Suspect]
     Dosage: 1 TABLET DAILY
     Dates: start: 20090713, end: 20090715

REACTIONS (24)
  - AGEUSIA [None]
  - ALOPECIA [None]
  - ARTHRALGIA [None]
  - CHILLS [None]
  - CHROMATURIA [None]
  - COUGH [None]
  - DECREASED APPETITE [None]
  - DIARRHOEA [None]
  - DISORIENTATION [None]
  - DIZZINESS [None]
  - DYSURIA [None]
  - FATIGUE [None]
  - FEELING OF BODY TEMPERATURE CHANGE [None]
  - GAIT DISTURBANCE [None]
  - HAEMATEMESIS [None]
  - HALLUCINATION [None]
  - LIMB INJURY [None]
  - MALAISE [None]
  - PAIN [None]
  - PHOTOPHOBIA [None]
  - POOR QUALITY SLEEP [None]
  - PRURITUS [None]
  - SWELLING [None]
  - WEIGHT DECREASED [None]
